FAERS Safety Report 6808622-5 (Version None)
Quarter: 2010Q2

REPORT INFORMATION
  Report Type: 
  Country: None (occurrence: None)
  Receive Date: 20100629
  Receipt Date: 20090907
  Transmission Date: 20101027
  Serious: Yes (Other)
  Sender: FDA-Public Use
  Company Number: US-PFIZER INC-2009227364

PATIENT
  Age: 60 Year
  Sex: Female
  Weight: 114 kg

DRUGS (11)
  1. ZYVOX [Suspect]
     Indication: ENTEROCOCCAL INFECTION
     Dosage: FREQUENCY: Q12HRS, EVERY DAY;
     Route: 042
     Dates: start: 20090610
  2. HEPARIN SODIUM [Suspect]
     Dates: start: 20090605, end: 20090601
  3. PROTONIX [Concomitant]
     Dosage: UNK
  4. ALBUTEROL [Concomitant]
     Dosage: UNK
  5. ALLOPURINOL [Concomitant]
     Dosage: UNK
  6. FENTANYL [Concomitant]
     Dosage: UNK
  7. INSULIN [Concomitant]
     Dosage: UNK
  8. POTASSIUM [Concomitant]
     Dosage: UNK
  9. MECLIZINE [Concomitant]
     Dosage: UNK
  10. MIDAZOLAM [Concomitant]
     Dosage: UNK
  11. PROMETHAZINE [Concomitant]
     Dosage: UNK

REACTIONS (1)
  - THROMBOCYTOPENIA [None]
